FAERS Safety Report 10290309 (Version 1)
Quarter: 2014Q3

REPORT INFORMATION
  Report Type: Spontaneous
  Country: US (occurrence: None)
  Receive Date: 20140707
  Receipt Date: 20140707
  Transmission Date: 20150326
  Serious: Yes (Hospitalization, Disabling)
  Sender: FDA-Public Use
  Company Number: None

PATIENT
  Age: 75 Year
  Sex: Male
  Weight: 62.6 kg

DRUGS (1)
  1. LEVOFLOXACIN [Suspect]
     Active Substance: LEVOFLOXACIN
     Indication: LUNG INFECTION
     Dosage: 1  ONCE DAILY TAKEN BY MOUTH
     Route: 048

REACTIONS (7)
  - Joint swelling [None]
  - Peripheral swelling [None]
  - Lung neoplasm malignant [None]
  - Arthralgia [None]
  - Pain in extremity [None]
  - Pneumothorax [None]
  - Tendon rupture [None]

NARRATIVE: CASE EVENT DATE: 20140610
